FAERS Safety Report 11379780 (Version 1)
Quarter: 2015Q3

REPORT INFORMATION
  Report Type: Spontaneous
  Country: US (occurrence: None)
  Receive Date: 20150813
  Receipt Date: 20150813
  Transmission Date: 20151125
  Serious: No
  Sender: FDA-Public Use
  Company Number: None

PATIENT
  Age: 49 Year
  Sex: Female
  Weight: 107.5 kg

DRUGS (1)
  1. PROCTOFOAM HC [Suspect]
     Active Substance: HYDROCORTISONE ACETATE\PRAMOXINE HYDROCHLORIDE
     Indication: HAEMORRHOIDS

REACTIONS (6)
  - Burning sensation [None]
  - Nausea [None]
  - Diarrhoea [None]
  - Hypoaesthesia [None]
  - Pain [None]
  - Swelling [None]

NARRATIVE: CASE EVENT DATE: 20150729
